FAERS Safety Report 22589093 (Version 2)
Quarter: 2023Q2

REPORT INFORMATION
  Report Type: Spontaneous
  Country: US (occurrence: US)
  Receive Date: 20230612
  Receipt Date: 20230626
  Transmission Date: 20230722
  Serious: Yes (Hospitalization, Other)
  Sender: FDA-Public Use
  Company Number: US-TEVA-2023-US-2896006

PATIENT
  Age: 49 Year
  Sex: Male

DRUGS (5)
  1. LISINOPRIL [Suspect]
     Active Substance: LISINOPRIL
     Indication: Hypertension
     Route: 065
  2. DOXEPIN [Suspect]
     Active Substance: DOXEPIN
     Indication: Gastrointestinal disorder
     Route: 065
  3. CHOLESTYRAMINE [Suspect]
     Active Substance: CHOLESTYRAMINE
     Indication: Gastrointestinal disorder
     Route: 065
  4. DICYCLOMINE [Suspect]
     Active Substance: DICYCLOMINE HYDROCHLORIDE
     Indication: Gastrointestinal disorder
     Route: 065
  5. MESALAMINE [Suspect]
     Active Substance: MESALAMINE
     Indication: Gastrointestinal disorder
     Route: 065

REACTIONS (2)
  - Angioedema [Recovered/Resolved]
  - Drug ineffective [Unknown]
